FAERS Safety Report 9716077 (Version 2)
Quarter: 2013Q4

REPORT INFORMATION
  Report Type: Spontaneous
  Country: US (occurrence: US)
  Receive Date: 20131127
  Receipt Date: 20131209
  Transmission Date: 20140711
  Serious: Yes (Other)
  Sender: FDA-Public Use
  Company Number: US-SA-2013SA122588

PATIENT
  Age: 84 Year
  Sex: Male
  Weight: 81.64 kg

DRUGS (2)
  1. LANTUS SOLOSTAR [Suspect]
     Indication: DIABETES MELLITUS
     Dosage: DOSE:15 UNIT(S)
     Route: 051
  2. SOLOSTAR [Concomitant]
     Indication: DIABETES MELLITUS

REACTIONS (6)
  - Pneumonia [Unknown]
  - Macular degeneration [Unknown]
  - Visual acuity reduced [Unknown]
  - Injury associated with device [Unknown]
  - Memory impairment [Unknown]
  - Expired drug administered [Unknown]
